FAERS Safety Report 6937311-1 (Version None)
Quarter: 2010Q3

REPORT INFORMATION
  Report Type: 
  Country: None (occurrence: None)
  Receive Date: 20100823
  Receipt Date: 20100816
  Transmission Date: 20110219
  Serious: Yes (Hospitalization)
  Sender: FDA-Public Use
  Company Number: DE-JNJFOC-20100801844

PATIENT
  Sex: Male
  Weight: 21.7 kg

DRUGS (6)
  1. REMICADE [Suspect]
     Indication: CROHN'S DISEASE
     Route: 042
  2. REMICADE [Suspect]
     Route: 042
  3. 5-ASA [Concomitant]
     Route: 048
  4. PREDNISONE [Concomitant]
  5. BUDESONIDE [Concomitant]
  6. CALCIUM [Concomitant]

REACTIONS (3)
  - ABDOMINAL PAIN [None]
  - CROHN'S DISEASE [None]
  - HAEMATOCHEZIA [None]
